FAERS Safety Report 19387437 (Version 2)
Quarter: 2021Q4

REPORT INFORMATION
  Report Type: Spontaneous
  Country: FR (occurrence: FR)
  Receive Date: 20210608
  Receipt Date: 20211006
  Transmission Date: 20220303
  Serious: Yes (Life-Threatening, Other)
  Sender: FDA-Public Use
  Company Number: None

PATIENT
  Age: 63 Year
  Sex: Male
  Weight: 95 kg

DRUGS (8)
  1. PROPOFOL [Suspect]
     Active Substance: PROPOFOL
     Indication: General anaesthesia
     Dosage: UNK
     Route: 042
     Dates: start: 20200911, end: 20200911
  2. ATROPINE [Suspect]
     Active Substance: ATROPINE
     Indication: Product used for unknown indication
     Dosage: 2 MILLIGRAM, TOTAL
     Route: 040
     Dates: start: 20200911, end: 20200911
  3. LIDOCAINE [Suspect]
     Active Substance: LIDOCAINE
     Indication: Nerve block
     Dosage: UNK
     Route: 042
     Dates: start: 20200911, end: 20200911
  4. CEFUROXIME [Suspect]
     Active Substance: CEFUROXIME
     Indication: Antibiotic prophylaxis
     Dosage: 1.5 GRAM, TOTAL
     Route: 040
     Dates: start: 20200911, end: 20200911
  5. MIDAZOLAM [Suspect]
     Active Substance: MIDAZOLAM
     Indication: General anaesthesia
     Dosage: UNK
     Route: 042
     Dates: start: 20200911, end: 20200911
  6. CISATRACURIUM [Suspect]
     Active Substance: CISATRACURIUM
     Indication: Product used for unknown indication
     Dosage: UNK
     Route: 042
     Dates: start: 20200911, end: 20200911
  7. NEOSTIGMINE. [Suspect]
     Active Substance: NEOSTIGMINE METHYLSULFATE
     Indication: Neuromuscular blockade reversal
     Dosage: 4 MILLIGRAM, TOTAL
     Route: 042
     Dates: start: 20200911, end: 20200911
  8. SUFENTANIL [Suspect]
     Active Substance: SUFENTANIL
     Indication: General anaesthesia
     Dosage: UNK
     Route: 042
     Dates: start: 20200911, end: 20200911

REACTIONS (4)
  - Acute pulmonary oedema [Recovered/Resolved]
  - Hypertension [Recovered/Resolved]
  - Cardiac arrest [Recovered/Resolved]
  - Tachycardia [Recovered/Resolved]

NARRATIVE: CASE EVENT DATE: 20200911
